FAERS Safety Report 6156836-2 (Version None)
Quarter: 2009Q2

REPORT INFORMATION
  Report Type: 
  Country: None (occurrence: None)
  Receive Date: 20090416
  Receipt Date: 20090414
  Transmission Date: 20091009
  Serious: Yes (Death, Life-Threatening, Hospitalization)
  Sender: FDA-Public Use
  Company Number: FR-BRISTOL-MYERS SQUIBB COMPANY-14516983

PATIENT
  Age: 71 Year
  Sex: Male
  Weight: 75 kg

DRUGS (7)
  1. PACLITAXEL [Suspect]
     Indication: NON-SMALL CELL LUNG CANCER
     Route: 042
     Dates: start: 20090122, end: 20090122
  2. CARBOPLATIN [Suspect]
     Indication: NON-SMALL CELL LUNG CANCER
     Route: 042
     Dates: start: 20090122, end: 20090122
  3. CP-751,871 [Suspect]
     Indication: NON-SMALL CELL LUNG CANCER
     Route: 042
     Dates: start: 20090122, end: 20090122
  4. CORDARONE [Concomitant]
     Indication: TACHYCARDIA
  5. PERINDOPRIL ERBUMINE [Concomitant]
     Indication: HYPERTENSION
  6. LASIX [Concomitant]
     Indication: HYPERTENSION
  7. CARDENSIEL [Concomitant]
     Indication: CARDIAC FAILURE

REACTIONS (1)
  - HYPOVOLAEMIC SHOCK [None]
